FAERS Safety Report 4738126-5 (Version None)
Quarter: 2005Q3

REPORT INFORMATION
  Report Type: 
  Country: None (occurrence: None)
  Receive Date: 20050805
  Receipt Date: 20050728
  Transmission Date: 20060218
  Serious: No
  Sender: FDA-Public Use
  Company Number: 11926

PATIENT
  Age: 34 Year
  Sex: Male

DRUGS (7)
  1. BLEOMYCIN [Suspect]
     Indication: TESTIS CANCER
     Dosage: 30 MG PER_CYCLE
     Dates: start: 20020412, end: 20020807
  2. ETOPOSIDE [Suspect]
     Indication: TESTIS CANCER
     Dosage: 124 MG PER_CYCLE
     Dates: start: 20020412, end: 20020807
  3. CISPLATIN [Suspect]
     Indication: TESTIS CANCER
     Dosage: 33 MG PER_CYCLE/ 30 MG PER_CYCLE
     Dates: start: 20020412, end: 20020807
  4. CISPLATIN [Suspect]
     Indication: TESTIS CANCER
     Dosage: 33 MG PER_CYCLE/ 30 MG PER_CYCLE
     Dates: start: 20021017, end: 20021130
  5. PACLITAXEL [Suspect]
     Indication: TESTIS CANCER
     Dosage: 240 MG PER_CYCLE
     Dates: start: 20021017, end: 20021130
  6. IFOSFAMIDE [Suspect]
     Indication: TESTIS CANCER
     Dosage: 1800 MG PER_CYCLE
     Dates: start: 20021017, end: 20021130
  7. VALPROIC ACID [Suspect]
     Indication: EPILEPSY
     Dosage: 1200 MG NOCTE PO
     Route: 048

REACTIONS (4)
  - ANTICONVULSANT DRUG LEVEL DECREASED [None]
  - DRUG INTERACTION [None]
  - GRAND MAL CONVULSION [None]
  - RED BLOOD CELL COUNT DECREASED [None]
